FAERS Safety Report 5076556-5 (Version None)
Quarter: 2006Q3

REPORT INFORMATION
  Report Type: 
  Country: None (occurrence: None)
  Receive Date: 20060810
  Receipt Date: 20060706
  Transmission Date: 20061208
  Serious: Yes (Other)
  Sender: FDA-Public Use
  Company Number: US-AMGEN-US185388

PATIENT
  Sex: Male
  Weight: 140.7 kg

DRUGS (2)
  1. ENBREL [Suspect]
     Indication: PSORIATIC ARTHROPATHY
     Dates: start: 20060601, end: 20060706
  2. KEPPRA [Suspect]
     Dates: start: 20060601, end: 20060706

REACTIONS (4)
  - ALANINE AMINOTRANSFERASE INCREASED [None]
  - CONDITION AGGRAVATED [None]
  - HEPATIC STEATOSIS [None]
  - PSORIATIC ARTHROPATHY [None]
